FAERS Safety Report 7179146-3 (Version None)
Quarter: 2010Q4

REPORT INFORMATION
  Report Type: 
  Country: None (occurrence: None)
  Receive Date: 20101221
  Receipt Date: 20101210
  Transmission Date: 20110411
  Serious: No
  Sender: FDA-Public Use
  Company Number: US-PFIZER INC-2010164050

PATIENT
  Sex: Male
  Weight: 90.703 kg

DRUGS (19)
  1. TOVIAZ [Suspect]
     Indication: BLADDER DISORDER
     Dosage: 4 MG, UNK
     Route: 048
     Dates: start: 20101101
  2. TOVIAZ [Suspect]
     Dosage: 8 MG, 1X/DAY
     Dates: start: 20100101
  3. WARFARIN SODIUM [Concomitant]
     Dosage: UNK
  4. HYTRIN [Concomitant]
     Dosage: UNK
  5. ACETYLSALICYLIC ACID [Concomitant]
     Dosage: 81 MG, UNK
     Route: 048
  6. ALLOPURINOL [Concomitant]
     Dosage: 300 MG, UNK
  7. COLCHICINE [Concomitant]
     Dosage: 0.6 MG, UNK
  8. FOLIC ACID [Concomitant]
     Dosage: 1 MG, UNK
  9. GABAPENTIN [Concomitant]
     Dosage: 300 MG, 4X/DAY
  10. LEVOXYL [Concomitant]
     Dosage: 88 MG, UNK
  11. LYRICA [Concomitant]
     Dosage: 300 MG, 3X/DAY
  12. METOLAZONE [Concomitant]
     Dosage: 2.5 MG, WEEKLY
  13. MULTIVITAMIN [Concomitant]
     Dosage: UNK
  14. LOVAZA [Concomitant]
     Dosage: UNK
  15. LANTUS [Concomitant]
     Dosage: 30 IU, UNK
  16. PROTONIX [Concomitant]
     Dosage: 40 MG, UNK
  17. VICODIN [Concomitant]
     Dosage: [HYDROCODONE BITARTRATE 7.5 MG]/[PARACETAMOL 750 MG], 4X/DAY
  18. SPIRIVA [Concomitant]
     Dosage: 18 UG, 1X/DAY
  19. CILOSTAZOL [Concomitant]
     Dosage: 50 MG, 1X/DAY

REACTIONS (3)
  - CONSTIPATION [None]
  - DIARRHOEA [None]
  - DRUG INEFFECTIVE [None]
